FAERS Safety Report 23779699 (Version 1)
Quarter: 2024Q2

REPORT INFORMATION
  Report Type: Spontaneous
  Country: US (occurrence: US)
  Receive Date: 20240424
  Receipt Date: 20240424
  Transmission Date: 20240716
  Serious: Yes (Other)
  Sender: FDA-Public Use
  Company Number: US-ABBVIE-5732177

PATIENT
  Age: 17 Year
  Sex: Female

DRUGS (1)
  1. LILETTA [Suspect]
     Active Substance: LEVONORGESTREL
     Indication: Product used for unknown indication
     Dosage: TIME INTERVAL: AS NECESSARY: FORM STRENGTH- 52 MILLIGRAM
     Route: 015
     Dates: start: 20240410, end: 20240418

REACTIONS (3)
  - Uterine haemorrhage [Unknown]
  - Device expulsion [Recovered/Resolved]
  - Uterine spasm [Unknown]

NARRATIVE: CASE EVENT DATE: 20240418
